FAERS Safety Report 8964945 (Version 1)
Quarter: 2012Q4

REPORT INFORMATION
  Report Type: Report from Study
  Country: AU (occurrence: AU)
  Receive Date: 20121214
  Receipt Date: 20121214
  Transmission Date: 20130627
  Serious: Yes (Other)
  Sender: FDA-Public Use
  Company Number: AU-ROCHE-1167208

PATIENT
  Age: 59 Year
  Sex: Female

DRUGS (2)
  1. TOCILIZUMAB [Suspect]
     Indication: RHEUMATOID ARTHRITIS
     Route: 042
     Dates: start: 20120622
  2. TOCILIZUMAB [Suspect]
     Route: 042
     Dates: start: 20121207

REACTIONS (1)
  - Hypotension [Recovered/Resolved with Sequelae]
